FAERS Safety Report 25235563 (Version 2)
Quarter: 2025Q2

REPORT INFORMATION
  Report Type: Spontaneous
  Country: US (occurrence: US)
  Receive Date: 20250424
  Receipt Date: 20250505
  Transmission Date: 20250716
  Serious: No
  Sender: DR REDDYS
  Company Number: US-DRL-USA-USA/2025/04/005692

PATIENT
  Sex: Female

DRUGS (1)
  1. HABITROL [Suspect]
     Active Substance: NICOTINE
     Indication: Ex-tobacco user
     Route: 062

REACTIONS (2)
  - Skin irritation [Not Recovered/Not Resolved]
  - Drug ineffective [Not Recovered/Not Resolved]
